FAERS Safety Report 23821031 (Version 1)
Quarter: 2024Q2

REPORT INFORMATION
  Report Type: Spontaneous
  Country: US (occurrence: US)
  Receive Date: 20240506
  Receipt Date: 20240506
  Transmission Date: 20240715
  Serious: No
  Sender: FDA-Public Use
  Company Number: US-ABBVIE-5743095

PATIENT
  Sex: Female

DRUGS (1)
  1. CREON [Suspect]
     Active Substance: PANCRELIPASE AMYLASE\PANCRELIPASE LIPASE\PANCRELIPASE PROTEASE
     Indication: Product used for unknown indication
     Route: 048
     Dates: start: 202401

REACTIONS (5)
  - Oropharyngeal pain [Unknown]
  - Myalgia [Unknown]
  - Eye inflammation [Unknown]
  - Arthralgia [Unknown]
  - Dry throat [Unknown]

NARRATIVE: CASE EVENT DATE: 20240101
